FAERS Safety Report 15778439 (Version 3)
Quarter: 2023Q2

REPORT INFORMATION
  Report Type: Spontaneous
  Country: US (occurrence: US)
  Receive Date: 20181231
  Receipt Date: 20230627
  Transmission Date: 20230721
  Serious: Yes (Other)
  Sender: FDA-Public Use
  Company Number: US-PFIZER INC-2018534217

PATIENT
  Age: 69 Year
  Sex: Female

DRUGS (1)
  1. XELJANZ XR [Suspect]
     Active Substance: TOFACITINIB CITRATE
     Dosage: 11 MG, 1X/DAY

REACTIONS (7)
  - Neck deformity [Unknown]
  - Spinal deformity [Unknown]
  - Kidney infection [Unknown]
  - Hip fracture [Unknown]
  - Mobility decreased [Unknown]
  - Ear infection [Unknown]
  - Movement disorder [Unknown]
